FAERS Safety Report 23793663 (Version 1)
Quarter: 2024Q2

REPORT INFORMATION
  Report Type: Spontaneous
  Country: US (occurrence: None)
  Receive Date: 20240426
  Receipt Date: 20240426
  Transmission Date: 20240715
  Serious: Yes (Hospitalization)
  Sender: FDA-Public Use
  Company Number: None

PATIENT
  Age: 76 Year
  Sex: Female

DRUGS (8)
  1. AMBRISENTAN [Suspect]
     Active Substance: AMBRISENTAN
     Indication: Pulmonary hypertension
     Dosage: FREQUENCY : DAILY;?
     Route: 048
     Dates: start: 20140318
  2. FUROSEMIDE [Concomitant]
     Active Substance: FUROSEMIDE
  3. DILTIAZEM [Concomitant]
     Active Substance: DILTIAZEM
  4. SPIRONOLACTONE [Concomitant]
     Active Substance: SPIRONOLACTONE
  5. DIBIGATRAN [Concomitant]
  6. CALCIUM CARBONATE [Concomitant]
     Active Substance: CALCIUM CARBONATE
  7. AMIODARONE [Concomitant]
     Active Substance: AMIODARONE
  8. VITAMIN D3 [Concomitant]
     Active Substance: CHOLECALCIFEROL

REACTIONS (3)
  - Acute respiratory failure [None]
  - Respiratory failure [None]
  - Adenovirus infection [None]

NARRATIVE: CASE EVENT DATE: 20240411
